FAERS Safety Report 11853649 (Version 1)
Quarter: 2015Q4

REPORT INFORMATION
  Report Type: Spontaneous
  Country: FR (occurrence: FR)
  Receive Date: 20151219
  Receipt Date: 20151219
  Transmission Date: 20160305
  Serious: Yes (Hospitalization)
  Sender: FDA-Public Use
  Company Number: FR-ABBVIE-15K-056-1519652-00

PATIENT
  Age: 54 Year
  Sex: Male

DRUGS (5)
  1. HUMIRA [Suspect]
     Active Substance: ADALIMUMAB
     Indication: PSORIASIS
     Route: 058
     Dates: start: 20150107, end: 20151022
  2. METHOTREXATE [Suspect]
     Active Substance: METHOTREXATE
     Indication: PSORIASIS
     Route: 048
     Dates: end: 201412
  3. DAIVOBET [Concomitant]
     Active Substance: BETAMETHASONE DIPROPIONATE\CALCIPOTRIENE
     Indication: PRODUCT USED FOR UNKNOWN INDICATION
  4. METHOTREXATE [Suspect]
     Active Substance: METHOTREXATE
     Route: 058
     Dates: start: 20150527
  5. SPECIAFOLDINE [Concomitant]
     Active Substance: FOLIC ACID
     Indication: PRODUCT USED FOR UNKNOWN INDICATION

REACTIONS (10)
  - Hyperlipasaemia [Recovered/Resolved]
  - Gastrointestinal disorder [Recovered/Resolved]
  - Nephrolithiasis [Unknown]
  - Bile duct stenosis [Unknown]
  - Abdominal pain [Recovered/Resolved]
  - Calculus ureteric [Recovered/Resolved]
  - Diarrhoea [Unknown]
  - Drug ineffective [Unknown]
  - Back pain [Unknown]
  - Abdominal discomfort [Unknown]

NARRATIVE: CASE EVENT DATE: 2015
